FAERS Safety Report 22626277 (Version 1)
Quarter: 2023Q2

REPORT INFORMATION
  Report Type: Spontaneous
  Country: US (occurrence: None)
  Receive Date: 20230619
  Receipt Date: 20230619
  Transmission Date: 20230722
  Serious: Yes (Hospitalization)
  Sender: FDA-Public Use
  Company Number: None

PATIENT
  Sex: Female

DRUGS (18)
  1. CINACALCET HYDROCHLORIDE [Suspect]
     Active Substance: CINACALCET HYDROCHLORIDE
     Indication: Chronic kidney disease
     Dosage: FREQUENCY : TWICE A DAY;?
     Route: 048
     Dates: start: 20210306
  2. ACTONEL [Concomitant]
     Active Substance: RISEDRONATE SODIUM
  3. ADALAT [Concomitant]
     Active Substance: NIFEDIPINE
  4. ALLOPURINOL [Concomitant]
     Active Substance: ALLOPURINOL
  5. ATENOLOL [Concomitant]
     Active Substance: ATENOLOL
  6. CANDESARTAN [Concomitant]
     Active Substance: CANDESARTAN
  7. CELLCEPT [Concomitant]
     Active Substance: MYCOPHENOLATE MOFETIL
  8. DOXERCALCIF [Concomitant]
  9. FERROUS SULFATE [Concomitant]
     Active Substance: FERROUS SULFATE
  10. FOLIC ACID [Concomitant]
     Active Substance: FOLIC ACID
  11. LASIX [Concomitant]
     Active Substance: FUROSEMIDE
  12. LIPITOR [Concomitant]
     Active Substance: ATORVASTATIN CALCIUM
  13. MAGNESIUM OXIDE [Concomitant]
     Active Substance: MAGNESIUM OXIDE
  14. MAGNEBIND [Concomitant]
  15. MYCOPHENOLIC ACID [Concomitant]
     Active Substance: MYCOPHENOLIC ACID
  16. PLAQUENIL [Concomitant]
     Active Substance: HYDROXYCHLOROQUINE SULFATE
  17. PREDNISONE [Concomitant]
     Active Substance: PREDNISONE
  18. SENSIPAR [Concomitant]
     Active Substance: CINACALCET HYDROCHLORIDE

REACTIONS (3)
  - Cardiac failure congestive [None]
  - Hypertension [None]
  - Fluid retention [None]
